FAERS Safety Report 8617792-8 (Version None)
Quarter: 2012Q3

REPORT INFORMATION
  Report Type: 
  Country: None (occurrence: None)
  Receive Date: 20120824
  Receipt Date: 20120302
  Transmission Date: 20120928
  Serious: No
  Sender: FDA-Public Use
  Company Number: US-ASTRAZENECA-2012SE14872

PATIENT
  Age: 65 Year
  Sex: Male
  Weight: 81.6 kg

DRUGS (6)
  1. FLUTICASONE PROPIONATE [Concomitant]
     Dates: start: 20070101, end: 20120101
  2. ALBUTEROL [Concomitant]
  3. COMBIVENT [Concomitant]
  4. HEART MEDS [Concomitant]
  5. IPRATROPIUM BROMIDE [Concomitant]
  6. SYMBICORT [Suspect]
     Indication: PNEUMONECTOMY
     Dosage: 160/4.5, 2 PUFFS  TWO TIMES A DAY
     Route: 055
     Dates: start: 20120201

REACTIONS (4)
  - OEDEMA PERIPHERAL [None]
  - OEDEMA [None]
  - BRONCHITIS [None]
  - COUGH [None]
